FAERS Safety Report 5280394-8 (Version None)
Quarter: 2007Q1

REPORT INFORMATION
  Report Type: 
  Country: None (occurrence: None)
  Receive Date: 20061229
  Receipt Date: 20060803
  Transmission Date: 20070707
  Serious: Yes (Other)
  Sender: FDA-Public Use
  Company Number: 2006UW15570

PATIENT
  Age: 55 Year
  Sex: Male

DRUGS (3)
  1. CRESTOR [Suspect]
     Dosage: 5 MG HS PO
     Route: 048
  2. ANTACID TAB [Suspect]
  3. ANTACID TAB [Concomitant]

REACTIONS (2)
  - DRUG INTERACTION [None]
  - DYSPEPSIA [None]
